FAERS Safety Report 24440781 (Version 1)
Quarter: 2024Q4

REPORT INFORMATION
  Report Type: Spontaneous
  Country: CN (occurrence: CN)
  Receive Date: 20241016
  Receipt Date: 20241016
  Transmission Date: 20250114
  Serious: No
  Sender: ALKEM
  Company Number: CN-ALKEM LABORATORIES LIMITED-CN-ALKEM-2024-19272

PATIENT
  Age: 13 Year
  Sex: Female

DRUGS (6)
  1. NIFEDIPINE [Suspect]
     Active Substance: NIFEDIPINE
     Indication: Blood pressure measurement
     Dosage: 0.35 MILLIGRAM/KILOGRAM
     Route: 065
  2. CAPTOPRIL [Suspect]
     Active Substance: CAPTOPRIL
     Indication: Blood pressure measurement
     Dosage: 0.35 MILLIGRAM/KILOGRAM
     Route: 065
  3. FUROSEMIDE [Concomitant]
     Active Substance: FUROSEMIDE
     Indication: Cranial nerve disorder
     Dosage: UNK
     Route: 065
  4. MANNITOL [Concomitant]
     Active Substance: MANNITOL
     Indication: Cranial nerve disorder
     Dosage: UNK
     Route: 065
  5. MIDAZOLAM [Concomitant]
     Active Substance: MIDAZOLAM
     Indication: Restlessness
     Dosage: UNK
     Route: 065
  6. PHENOBARBITAL [Concomitant]
     Active Substance: PHENOBARBITAL
     Indication: Restlessness
     Dosage: UNK
     Route: 065

REACTIONS (1)
  - Drug ineffective [Unknown]
